FAERS Safety Report 10145137 (Version 1)
Quarter: 2014Q2

REPORT INFORMATION
  Report Type: Spontaneous
  Country: US (occurrence: US)
  Receive Date: 20140501
  Receipt Date: 20140501
  Transmission Date: 20141212
  Serious: No
  Sender: FDA-Public Use
  Company Number: US-BIOGENIDEC-2014BI022829

PATIENT
  Age: 56 Year
  Sex: Male

DRUGS (2)
  1. AVONEX [Suspect]
     Indication: MULTIPLE SCLEROSIS
     Route: 030
  2. AVONEX [Suspect]
     Indication: MULTIPLE SCLEROSIS
     Route: 030
     Dates: start: 20130208, end: 201402

REACTIONS (5)
  - Increased appetite [Recovered/Resolved]
  - Weight decreased [Recovered/Resolved]
  - Insomnia [Recovered/Resolved]
  - Thyroid function test abnormal [Recovered/Resolved]
  - Hyperthyroidism [Recovered/Resolved]
